FAERS Safety Report 4816709-1 (Version None)
Quarter: 2005Q4

REPORT INFORMATION
  Report Type: 
  Country: None (occurrence: None)
  Receive Date: 20051101
  Receipt Date: 20051003
  Transmission Date: 20060501
  Serious: Yes (Hospitalization)
  Sender: FDA-Public Use
  Company Number: IE-GLAXOSMITHKLINE-B0396370A

PATIENT
  Sex: Female

DRUGS (1)
  1. FLIXONASE NASAL SPRAY [Suspect]
     Route: 045
     Dates: start: 20050101

REACTIONS (2)
  - MALAISE [None]
  - PHARMACEUTICAL PRODUCT COMPLAINT [None]
